FAERS Safety Report 6523478-6 (Version None)
Quarter: 2009Q4

REPORT INFORMATION
  Report Type: 
  Country: None (occurrence: None)
  Receive Date: 20091231
  Receipt Date: 20091218
  Transmission Date: 20100525
  Serious: Yes (Other)
  Sender: FDA-Public Use
  Company Number: PHHY2009IT59641

PATIENT
  Sex: Male

DRUGS (3)
  1. ZOMETA [Suspect]
     Indication: RENAL CANCER
     Dosage: 4 MG, QMO
     Route: 042
     Dates: start: 20050801, end: 20060930
  2. TORISEL [Suspect]
     Indication: RENAL CANCER
     Dosage: 25 MG, QW
     Route: 042
     Dates: start: 20070901, end: 20071031
  3. SUTENT [Concomitant]
     Dosage: 25 MG, UNK
     Route: 048
     Dates: start: 20070201, end: 20071031

REACTIONS (1)
  - OSTEONECROSIS [None]
